FAERS Safety Report 8672671 (Version 7)
Quarter: 2012Q4

REPORT INFORMATION
  Report Type: 
  Country: FR (occurrence: FR)
  Receive Date: 20120719
  Receipt Date: 20121214
  Transmission Date: 20130627
  Serious: Yes (Life-Threatening, Hospitalization)
  Sender: FDA-Public Use
  Company Number: FR-PFIZER INC-2012168657

PATIENT
  Age: 80 Year
  Sex: Male

DRUGS (12)
  1. EUPANTOL [Suspect]
     Dosage: 20 mg, daily
     Route: 048
     Dates: start: 201204, end: 20120501
  2. EUPANTOL [Suspect]
     Dosage: 20 mg, daily
     Route: 048
     Dates: start: 20120604, end: 20120624
  3. AMLOR [Suspect]
     Dosage: 5 mg, 1x/day
     Route: 048
     Dates: start: 201204, end: 20120501
  4. AMLOR [Suspect]
     Dosage: 10 mg, daily
     Route: 048
     Dates: start: 20120607
  5. PREVISCAN [Suspect]
     Indication: CARDIAC VALVE PROSTHESIS USER
     Dosage: depending on INR, unk
     Route: 048
     Dates: start: 20120423, end: 20120501
  6. PREVISCAN [Suspect]
     Dosage: UNK
     Route: 048
  7. LASILIX [Suspect]
     Dosage: 40 mg, 1x/day
     Route: 048
     Dates: start: 201203, end: 20120501
  8. KARDEGIC [Suspect]
     Dosage: 75 mg, 1x/day
     Route: 048
     Dates: start: 20120418, end: 20120501
  9. DIFFU K [Suspect]
     Dosage: 2 DF, 1x/day
     Route: 048
     Dates: start: 20120427, end: 20120501
  10. TARDYFERON [Suspect]
     Dosage: 2 DF, 1x/day
     Route: 048
     Dates: start: 201204, end: 20120501
  11. CALCIPARIN [Suspect]
     Dosage: 0.4 ml, 2x/day
     Route: 042
     Dates: start: 20120418
  12. BISOCE [Suspect]
     Dosage: UNK
     Route: 048
     Dates: start: 20120612

REACTIONS (2)
  - Agranulocytosis [Recovered/Resolved]
  - Tubulointerstitial nephritis [Recovered/Resolved]
